FAERS Safety Report 5951609-5 (Version None)
Quarter: 2008Q4

REPORT INFORMATION
  Report Type: 
  Country: None (occurrence: None)
  Receive Date: 20081113
  Receipt Date: 20081105
  Transmission Date: 20090506
  Serious: Yes (Hospitalization)
  Sender: FDA-Public Use
  Company Number: PHHY2008SK27707

PATIENT
  Sex: Female

DRUGS (1)
  1. ACLASTA [Suspect]
     Indication: OSTEOPOROSIS POSTMENOPAUSAL

REACTIONS (6)
  - BODY TEMPERATURE INCREASED [None]
  - DEHYDRATION [None]
  - FALL [None]
  - LETHARGY [None]
  - PAIN [None]
  - VOMITING [None]
